FAERS Safety Report 7380924-6 (Version None)
Quarter: 2011Q1

REPORT INFORMATION
  Report Type: 
  Country: None (occurrence: None)
  Receive Date: 20110329
  Receipt Date: 20110324
  Transmission Date: 20110831
  Serious: Yes (Hospitalization, Other)
  Sender: FDA-Public Use
  Company Number: PHHY2011US06527

PATIENT
  Sex: Female

DRUGS (1)
  1. EXJADE [Suspect]
     Indication: SICKLE CELL ANAEMIA
     Dosage: 500 MG, DAILY
     Route: 048

REACTIONS (3)
  - DIARRHOEA [None]
  - MYOCARDIAL INFARCTION [None]
  - SICKLE CELL ANAEMIA WITH CRISIS [None]
